FAERS Safety Report 21058428 (Version 1)
Quarter: 2022Q3

REPORT INFORMATION
  Report Type: Spontaneous
  Country: US (occurrence: None)
  Receive Date: 20220708
  Receipt Date: 20220708
  Transmission Date: 20221027
  Serious: Yes (Other)
  Sender: FDA-Public Use
  Company Number: None

PATIENT
  Age: 42 Year
  Sex: Female
  Weight: 56.25 kg

DRUGS (1)
  1. CELECOXIB [Suspect]
     Active Substance: CELECOXIB
     Indication: Pain
     Dosage: FREQUENCY : DAILY;?
     Route: 048
     Dates: start: 20220615, end: 20220701

REACTIONS (4)
  - Rash [None]
  - Pruritus [None]
  - Dyspnoea [None]
  - Heart rate increased [None]

NARRATIVE: CASE EVENT DATE: 20220701
